FAERS Safety Report 8186579-5 (Version None)
Quarter: 2012Q1

REPORT INFORMATION
  Report Type: 
  Country: None (occurrence: None)
  Receive Date: 20120305
  Receipt Date: 20120305
  Transmission Date: 20120608
  Serious: Yes (Hospitalization)
  Sender: FDA-Public Use
  Company Number: None

PATIENT
  Sex: Female
  Weight: 85.27 kg

DRUGS (18)
  1. CYTARABINE [Suspect]
     Dosage: 70 MG
  2. METHOTREXATE [Suspect]
     Dosage: 30 MG
  3. LEVAQUIN [Concomitant]
  4. METHYLPREDNISOLONE [Suspect]
     Dosage: 3528 MG
  5. NOVOLOG [Concomitant]
  6. PROCLORPERAZINE [Concomitant]
  7. PEG-L-ASPARAGINASE (K-H) [Suspect]
     Dosage: 5250IU
  8. OMEPRAZOLE [Concomitant]
  9. RA SENNA [Concomitant]
  10. VALTREX [Concomitant]
  11. ZOFRAN [Concomitant]
  12. VINCRISTINE SULFATE [Suspect]
     Dosage: 8 MG
  13. DOCUPRENE [Concomitant]
  14. OXYCODONE HCL [Concomitant]
  15. DAUNORUBICIN HCL [Suspect]
     Dosage: 210 MG
  16. AMLODIPINE BESYLATE [Concomitant]
  17. FLUCONAZOLE [Concomitant]
  18. LORAZEPAM [Concomitant]

REACTIONS (3)
  - HEPATITIS ACUTE [None]
  - HEPATIC STEATOSIS [None]
  - CHOLELITHIASIS [None]
